FAERS Safety Report 10236120 (Version 1)
Quarter: 2014Q2

REPORT INFORMATION
  Report Type: Report from Study
  Country: US (occurrence: US)
  Receive Date: 20140613
  Receipt Date: 20140613
  Transmission Date: 20141212
  Serious: No
  Sender: FDA-Public Use
  Company Number: US-VERTEX PHARMACEUTICALS INC-2014-002661

PATIENT
  Age: 45 Year
  Sex: Female

DRUGS (2)
  1. IVACAFTOR [Suspect]
     Indication: CYSTIC FIBROSIS
     Dosage: 150 MG, QD
     Route: 048
     Dates: start: 20120427
  2. IVACAFTOR [Suspect]
     Dosage: 150 MG, BID
     Route: 048
     Dates: start: 2014

REACTIONS (2)
  - Pulmonary function test decreased [Unknown]
  - Headache [Not Recovered/Not Resolved]
